FAERS Safety Report 6488229-2 (Version None)
Quarter: 2009Q4

REPORT INFORMATION
  Report Type: 
  Country: None (occurrence: None)
  Receive Date: 20091210
  Receipt Date: 20091207
  Transmission Date: 20100525
  Serious: Yes (Hospitalization)
  Sender: FDA-Public Use
  Company Number: B0613046A

PATIENT
  Sex: Male

DRUGS (7)
  1. REQUIP [Suspect]
     Indication: PARKINSON'S DISEASE
     Dosage: .25MG PER DAY
     Route: 048
     Dates: start: 20090109, end: 20090116
  2. AMANTADINE HYDROCHLORIDE [Suspect]
     Indication: PARKINSON'S DISEASE
     Dosage: 100MG TWICE PER DAY
     Route: 048
  3. STALEVO 100 [Suspect]
     Indication: PARKINSON'S DISEASE
     Route: 048
     Dates: end: 20090830
  4. MADOPAR [Suspect]
     Indication: PARKINSON'S DISEASE
     Dosage: 125MG PER DAY
  5. NACOM [Suspect]
     Indication: PARKINSON'S DISEASE
     Dosage: 250MG PER DAY
     Dates: start: 20090117
  6. SIFROL [Suspect]
     Indication: PARKINSON'S DISEASE
     Dosage: .7MG PER DAY
     Dates: start: 20090401
  7. PIRIBEDIL [Suspect]
     Indication: PARKINSON'S DISEASE
     Dosage: 50MG TWICE PER DAY
     Dates: start: 20090828

REACTIONS (4)
  - AUTONOMIC NERVOUS SYSTEM IMBALANCE [None]
  - CARDIOVASCULAR DISORDER [None]
  - FALL [None]
  - SYNCOPE [None]
